FAERS Safety Report 21071068 (Version 3)
Quarter: 2024Q4

REPORT INFORMATION
  Report Type: Spontaneous
  Country: US (occurrence: US)
  Receive Date: 20220712
  Receipt Date: 20241129
  Transmission Date: 20250114
  Serious: No
  Sender: TAKEDA
  Company Number: US-TAKEDA-2022TUS046011

PATIENT
  Age: 44 Year
  Sex: Female

DRUGS (5)
  1. MYDAYIS [Suspect]
     Active Substance: AMPHETAMINE ASPARTATE\AMPHETAMINE SULFATE\DEXTROAMPHETAMINE SACCHARATE\DEXTROAMPHETAMINE SULFATE
     Indication: Attention deficit hyperactivity disorder
     Dosage: 50 MILLIGRAM, UNK
  2. MYDAYIS [Suspect]
     Active Substance: AMPHETAMINE ASPARTATE\AMPHETAMINE SULFATE\DEXTROAMPHETAMINE SACCHARATE\DEXTROAMPHETAMINE SULFATE
     Dosage: UNK
  3. ADDERALL XR [Suspect]
     Active Substance: AMPHETAMINE ASPARTATE\AMPHETAMINE SULFATE\DEXTROAMPHETAMINE SACCHARATE\DEXTROAMPHETAMINE SULFATE
     Indication: Product used for unknown indication
     Dosage: UNK
  4. VYVANSE [Suspect]
     Active Substance: LISDEXAMFETAMINE DIMESYLATE
     Indication: Attention deficit hyperactivity disorder
     Dosage: 70 MILLIGRAM
  5. LISDEXAMFETAMINE DIMESYLATE [Suspect]
     Active Substance: LISDEXAMFETAMINE DIMESYLATE
     Indication: Attention deficit hyperactivity disorder
     Dosage: UNK

REACTIONS (21)
  - Incorrect dose administered [Unknown]
  - Peripheral swelling [Unknown]
  - Insurance issue [Unknown]
  - Dyslexia [Unknown]
  - Product physical issue [Unknown]
  - Product label issue [Unknown]
  - Illness [Unknown]
  - Stress [Unknown]
  - Drug hypersensitivity [Unknown]
  - Patient elopement [Unknown]
  - Executive dysfunction [Unknown]
  - Toxicity to various agents [Unknown]
  - Product quality issue [Unknown]
  - Malaise [Unknown]
  - Frustration tolerance decreased [Unknown]
  - Memory impairment [Unknown]
  - Drug ineffective [Unknown]
  - Feeling abnormal [Unknown]
  - Nervousness [Unknown]
  - Fatigue [Unknown]
  - Rash [Unknown]
